FAERS Safety Report 8334546-0 (Version None)
Quarter: 2012Q2

REPORT INFORMATION
  Report Type: 
  Country: None (occurrence: None)
  Receive Date: 20120503
  Receipt Date: 20110331
  Transmission Date: 20120825
  Serious: No
  Sender: FDA-Public Use
  Company Number: US-TEVA-2011001563

PATIENT
  Sex: Female

DRUGS (3)
  1. NUVIGIL [Suspect]
     Dosage: 450 MILLIGRAM;
     Route: 048
  2. NUVIGIL [Suspect]
     Dosage: 250 MILLIGRAM;
     Route: 048
  3. NUVIGIL [Suspect]
     Dosage: 150 MILLIGRAM;
     Route: 048

REACTIONS (2)
  - DRUG PRESCRIBING ERROR [None]
  - DRUG INEFFECTIVE [None]
